FAERS Safety Report 6089279-0 (Version None)
Quarter: 2009Q1

REPORT INFORMATION
  Report Type: 
  Country: None (occurrence: None)
  Receive Date: 20090224
  Receipt Date: 20090217
  Transmission Date: 20090719
  Serious: Yes (Other)
  Sender: FDA-Public Use
  Company Number: US-MERCK-0902USA02896

PATIENT
  Age: 88 Year
  Sex: Female

DRUGS (2)
  1. HYZAAR [Suspect]
     Indication: HYPERTENSION
     Route: 048
     Dates: start: 20000101, end: 20090101
  2. NORVASC [Concomitant]
     Route: 065

REACTIONS (3)
  - COUGH [None]
  - ECZEMA [None]
  - RESPIRATORY PARALYSIS [None]
